FAERS Safety Report 4561649-9 (Version None)
Quarter: 2005Q1

REPORT INFORMATION
  Report Type: 
  Country: None (occurrence: None)
  Receive Date: 20050121
  Receipt Date: 20050117
  Transmission Date: 20050727
  Serious: No
  Sender: FDA-Public Use
  Company Number: 2004UW25293

PATIENT
  Age: 13 Year
  Sex: Female
  Weight: 50.3493 kg

DRUGS (2)
  1. SEROQUEL [Suspect]
     Indication: PSYCHOTIC DISORDER
     Dosage: 300 MG HS PO
     Route: 048
     Dates: start: 20041107, end: 20041210
  2. TRILEPTAL [Concomitant]

REACTIONS (3)
  - COUGH [None]
  - LARYNGOSPASM [None]
  - STRIDOR [None]
